FAERS Safety Report 5339304-7 (Version None)
Quarter: 2007Q2

REPORT INFORMATION
  Report Type: 
  Country: None (occurrence: None)
  Receive Date: 20070530
  Receipt Date: 20070522
  Transmission Date: 20071010
  Serious: No
  Sender: FDA-Public Use
  Company Number: JP-MERCK-0705USA02993

PATIENT
  Age: 65 Year
  Sex: Female

DRUGS (2)
  1. PRINIVIL [Suspect]
     Indication: HYPERTENSION
     Route: 048
     Dates: start: 20061010, end: 20070411
  2. NORVASC [Concomitant]
     Indication: HYPERTENSION
     Route: 048
     Dates: start: 20061010, end: 20070411

REACTIONS (3)
  - EAR DISCOMFORT [None]
  - GASTROINTESTINAL EROSION [None]
  - PAROTITIS [None]
